FAERS Safety Report 7479198-7 (Version None)
Quarter: 2011Q2

REPORT INFORMATION
  Report Type: 
  Country: None (occurrence: None)
  Receive Date: 20110513
  Receipt Date: 20110504
  Transmission Date: 20111010
  Serious: Yes (Death, Hospitalization)
  Sender: FDA-Public Use
  Company Number: A0912061A

PATIENT
  Sex: Female
  Weight: 50 kg

DRUGS (5)
  1. METOCLOPRAMIDA [Concomitant]
  2. TYKERB [Suspect]
     Indication: BREAST CANCER
     Dosage: 1250MG PER DAY
     Route: 048
     Dates: start: 20101215, end: 20110316
  3. CAPECITABINE [Suspect]
     Indication: BREAST CANCER
     Dosage: 2500MG PER DAY
     Route: 048
     Dates: start: 20101215, end: 20110316
  4. RADIATION [Concomitant]
  5. DEXAMETHASONE [Concomitant]

REACTIONS (9)
  - PLEURAL EFFUSION [None]
  - COUGH [None]
  - VISUAL ACUITY REDUCED [None]
  - DYSPNOEA [None]
  - VOMITING [None]
  - HEADACHE [None]
  - PNEUMONIA [None]
  - LUNG INFILTRATION [None]
  - DIZZINESS [None]
